FAERS Safety Report 6678163-7 (Version None)
Quarter: 2010Q2

REPORT INFORMATION
  Report Type: 
  Country: None (occurrence: None)
  Receive Date: 20100409
  Receipt Date: 20100409
  Transmission Date: 20101027
  Serious: Yes (Other)
  Sender: FDA-Public Use
  Company Number: None

PATIENT
  Age: 16 Year
  Sex: Male

DRUGS (1)
  1. VANCOMYCIN [Suspect]
     Indication: CELLULITIS
     Dosage: 2 IV
     Route: 042
     Dates: start: 20100226, end: 20100226

REACTIONS (3)
  - FEELING ABNORMAL [None]
  - HEADACHE [None]
  - URTICARIA [None]
